FAERS Safety Report 10141462 (Version 9)
Quarter: 2015Q2

REPORT INFORMATION
  Report Type: Report from Study
  Country: CA (occurrence: CA)
  Receive Date: 20140429
  Receipt Date: 20150504
  Transmission Date: 20150821
  Serious: Yes (Other)
  Sender: FDA-Public Use
  Company Number: PHHY2013CA153022

PATIENT
  Sex: Male

DRUGS (4)
  1. GLICLAZIDE [Concomitant]
     Active Substance: GLICLAZIDE
     Indication: PRODUCT USED FOR UNKNOWN INDICATION
     Dosage: 80 MG BID
     Route: 065
  2. SANDOSTATIN [Suspect]
     Active Substance: OCTREOTIDE ACETATE
     Indication: NEUROENDOCRINE TUMOUR
     Route: 058
     Dates: start: 20130827, end: 20130827
  3. GLICLAZIDE [Concomitant]
     Active Substance: GLICLAZIDE
     Dosage: 30 MG, BED TIME
     Route: 065
  4. SANDOSTATIN LAR DEPOT [Suspect]
     Active Substance: OCTREOTIDE ACETATE
     Indication: NEUROENDOCRINE TUMOUR
     Dosage: 30 MG, QMO
     Route: 030
     Dates: start: 20130903

REACTIONS (19)
  - Oedema [Unknown]
  - Contusion [Unknown]
  - Gastrointestinal motility disorder [Recovering/Resolving]
  - Nephrolithiasis [Unknown]
  - Blood creatinine increased [Unknown]
  - Localised infection [Unknown]
  - Weight decreased [Unknown]
  - Heart rate decreased [Unknown]
  - Mass [Unknown]
  - Atrial fibrillation [Unknown]
  - Heart rate increased [Recovered/Resolved]
  - Oedema peripheral [Unknown]
  - Nausea [Recovering/Resolving]
  - Fatigue [Unknown]
  - Somnolence [Unknown]
  - Hypoacusis [Recovering/Resolving]
  - Blood glucose increased [Unknown]
  - Eyelid ptosis [Unknown]
  - Abdominal pain upper [Recovering/Resolving]

NARRATIVE: CASE EVENT DATE: 2014
